FAERS Safety Report 9511400 (Version 1)
Quarter: 2013Q3

REPORT INFORMATION
  Report Type: Spontaneous
  Country: US (occurrence: US)
  Receive Date: 20130910
  Receipt Date: 20130910
  Transmission Date: 20140515
  Serious: No
  Sender: FDA-Public Use
  Company Number: US-009507513-1309USA003819

PATIENT
  Age: 10 Year
  Sex: Male

DRUGS (1)
  1. DULERA [Suspect]
     Dosage: UNK
     Dates: start: 201308

REACTIONS (3)
  - Drug administered to patient of inappropriate age [Unknown]
  - Off label use [Unknown]
  - No adverse event [Unknown]
